FAERS Safety Report 7136704-X (Version None)
Quarter: 2010Q4

REPORT INFORMATION
  Report Type: 
  Country: None (occurrence: None)
  Receive Date: 20101206
  Receipt Date: 20080122
  Transmission Date: 20110411
  Serious: Yes (Death)
  Sender: FDA-Public Use
  Company Number: US-ACTELION-A-NJ2007-18051

PATIENT

DRUGS (2)
  1. ILOPROST INHALATION SOLUTION 2.5UG US [Suspect]
     Indication: PULMONARY ARTERIAL HYPERTENSION
     Route: 055
     Dates: start: 20070919
  2. SILDENAFIL CITRATE [Concomitant]

REACTIONS (3)
  - CHEST DISCOMFORT [None]
  - DEATH [None]
  - HEART RATE INCREASED [None]
